FAERS Safety Report 4330217-6 (Version None)
Quarter: 2004Q1

REPORT INFORMATION
  Report Type: 
  Country: None (occurrence: None)
  Receive Date: 20040329
  Receipt Date: 20040315
  Transmission Date: 20041129
  Serious: Yes (Death, Hospitalization)
  Sender: FDA-Public Use
  Company Number: 04P-144-0249875-00

PATIENT
  Age: 53 Year
  Sex: Male

DRUGS (7)
  1. KALETRA [Suspect]
     Indication: HIV INFECTION
     Dosage: 3 CAPSULES, 2 IN 1 D. PER ORAL
     Route: 048
     Dates: start: 20020905
  2. ZIDOVUDINE [Concomitant]
  3. LAMIVUDINE [Concomitant]
  4. PENTAMIDINE [Concomitant]
  5. ETHAMBUTOL HCL [Concomitant]
  6. CLARITHROMYCIN [Concomitant]
  7. VIREAD [Concomitant]

REACTIONS (13)
  - CACHEXIA [None]
  - COUGH [None]
  - DEHYDRATION [None]
  - DYSPNOEA [None]
  - GENERAL PHYSICAL HEALTH DETERIORATION [None]
  - HAEMOPTYSIS [None]
  - NORMOCHROMIC NORMOCYTIC ANAEMIA [None]
  - OPPORTUNISTIC INFECTION [None]
  - ORAL INFECTION [None]
  - OVERDOSE [None]
  - PANCREATITIS [None]
  - RENAL FAILURE [None]
  - VOMITING [None]
